FAERS Safety Report 5011820-7 (Version None)
Quarter: 2006Q2

REPORT INFORMATION
  Report Type: 
  Country: None (occurrence: None)
  Receive Date: 20060526
  Receipt Date: 20060320
  Transmission Date: 20061013
  Serious: Yes (Death)
  Sender: FDA-Public Use
  Company Number: US-AVENTIS-200612793US

PATIENT
  Age: 51 Year
  Sex: Male

DRUGS (8)
  1. RIFAMPIN [Suspect]
     Indication: TUBERCULOSIS
     Dates: start: 20000411, end: 20000705
  2. PYRAZINAMIDE [Suspect]
     Indication: TUBERCULOSIS
     Dates: start: 20000411, end: 20000705
  3. DILANTIN [Concomitant]
     Dosage: DOSE: UNK
  4. ZYRTEC [Concomitant]
     Dosage: DOSE: UNK
  5. PENICILLIN VK [Concomitant]
     Dosage: DOSE: UNK
  6. COLACE [Concomitant]
     Dosage: DOSE: UNK
  7. VASOTEC [Concomitant]
     Dosage: DOSE: UNK
  8. MOTRIN [Concomitant]
     Dosage: DOSE: UNK

REACTIONS (11)
  - ABDOMINAL PAIN [None]
  - ALANINE AMINOTRANSFERASE INCREASED [None]
  - ANOREXIA [None]
  - ASPARTATE AMINOTRANSFERASE INCREASED [None]
  - BILIRUBIN CONJUGATED INCREASED [None]
  - BLOOD ALKALINE PHOSPHATASE INCREASED [None]
  - BLOOD BILIRUBIN INCREASED [None]
  - HEPATITIS C POSITIVE [None]
  - HEPATOCELLULAR DAMAGE [None]
  - JAUNDICE [None]
  - NAUSEA [None]
